FAERS Safety Report 23115055 (Version 1)
Quarter: 2023Q4

REPORT INFORMATION
  Report Type: Spontaneous
  Country: US (occurrence: None)
  Receive Date: 20231026
  Receipt Date: 20231026
  Transmission Date: 20240109
  Serious: Yes (Life-Threatening, Hospitalization)
  Sender: FDA-Public Use
  Company Number: None

PATIENT
  Age: 83 Year
  Sex: Male

DRUGS (1)
  1. RIVAROXABAN [Suspect]
     Active Substance: RIVAROXABAN

REACTIONS (7)
  - Asthenia [None]
  - Blood pressure measurement [None]
  - Faeces discoloured [None]
  - Occult blood positive [None]
  - Thrombocytopenia [None]
  - Oesophagitis [None]
  - Therapy cessation [None]

NARRATIVE: CASE EVENT DATE: 20230524
